FAERS Safety Report 7957640-2 (Version None)
Quarter: 2011Q4

REPORT INFORMATION
  Report Type: 
  Country: None (occurrence: None)
  Receive Date: 20111205
  Receipt Date: 20111123
  Transmission Date: 20120403
  Serious: Yes (Other)
  Sender: FDA-Public Use
  Company Number: PHEH2011US08260

PATIENT
  Sex: Female

DRUGS (6)
  1. EXELON [Suspect]
     Dosage: 4.6 MG, UNK
     Route: 062
  2. METOPROLOL [Concomitant]
     Dosage: UNK UKN, UNK
  3. CRESTOR [Concomitant]
     Dosage: UNK UKN, UNK
  4. EXELON [Suspect]
     Dosage: 9.5 MG, 1XDAY
     Route: 062
  5. EXELON [Suspect]
     Dosage: 4.6 MG, UNK
     Route: 062
  6. DIOVAN [Concomitant]
     Dosage: UNK UKN, UNK

REACTIONS (5)
  - LOOSE ASSOCIATIONS [None]
  - MALAISE [None]
  - DRUG INTOLERANCE [None]
  - LOSS OF CONSCIOUSNESS [None]
  - PAIN [None]
